FAERS Safety Report 6960961-3 (Version None)
Quarter: 2010Q3

REPORT INFORMATION
  Report Type: 
  Country: None (occurrence: None)
  Receive Date: 20100830
  Receipt Date: 20100819
  Transmission Date: 20110219
  Serious: Yes (Other)
  Sender: FDA-Public Use
  Company Number: 2010SP045328

PATIENT
  Sex: Male

DRUGS (2)
  1. PEG-INTRON [Suspect]
     Indication: HEPATITIS C
     Dates: start: 20100803
  2. RIBAVIRIN [Suspect]
     Indication: HEPATITIS C
     Dates: start: 20100803

REACTIONS (6)
  - DIZZINESS [None]
  - DYSARTHRIA [None]
  - EPISTAXIS [None]
  - GAIT DISTURBANCE [None]
  - HAEMATOCHEZIA [None]
  - THINKING ABNORMAL [None]
